FAERS Safety Report 25323967 (Version 1)
Quarter: 2025Q2

REPORT INFORMATION
  Report Type: Spontaneous
  Country: US (occurrence: US)
  Receive Date: 20250516
  Receipt Date: 20250516
  Transmission Date: 20250717
  Serious: Yes (Other)
  Sender: PFIZER
  Company Number: US-PFIZER INC-202500102476

PATIENT
  Age: 71 Year
  Sex: Male

DRUGS (1)
  1. XELJANZ XR [Suspect]
     Active Substance: TOFACITINIB CITRATE
     Dosage: 24 HR TAKE 1 TABLET BY MOUTH EVERY DAY
     Route: 048

REACTIONS (3)
  - Cataract [Unknown]
  - Neck pain [Unknown]
  - Corneal oedema [Unknown]
